FAERS Safety Report 4801345-3 (Version None)
Quarter: 2005Q4

REPORT INFORMATION
  Report Type: 
  Country: None (occurrence: None)
  Receive Date: 20051017
  Receipt Date: 20050613
  Transmission Date: 20060501
  Serious: Yes (Life-Threatening, Hospitalization)
  Sender: FDA-Public Use
  Company Number: US-MERCK-0506USA02002

PATIENT
  Age: 63 Year
  Sex: Female

DRUGS (6)
  1. VIOXX [Suspect]
     Indication: ARTHRITIS
     Route: 048
     Dates: start: 19990101, end: 20040930
  2. SYNTHROID [Concomitant]
     Route: 048
  3. FLOVENT [Concomitant]
     Route: 065
  4. DETROL [Concomitant]
     Route: 065
  5. ASPIRIN [Concomitant]
     Route: 048
  6. FOSAMAX [Concomitant]
     Route: 065

REACTIONS (6)
  - ACTINIC KERATOSIS [None]
  - ADRENAL MASS [None]
  - AORTIC ANEURYSM [None]
  - APPENDICITIS [None]
  - PERIPHERAL ARTERY ANEURYSM [None]
  - URINARY TRACT INFECTION [None]
